FAERS Safety Report 21902226 (Version 1)
Quarter: 2023Q1

REPORT INFORMATION
  Report Type: Other
  Country: IN (occurrence: None)
  Receive Date: 20230124
  Receipt Date: 20230124
  Transmission Date: 20230417
  Serious: Yes (Hospitalization, Other)
  Sender: FDA-Public Use
  Company Number: IN-ROCHE-3266768

PATIENT
  Sex: Female

DRUGS (1)
  1. PERJETA [Suspect]
     Active Substance: PERTUZUMAB
     Indication: Breast cancer metastatic
     Route: 042

REACTIONS (7)
  - Pain in extremity [Unknown]
  - Neoplasm [Unknown]
  - Asthenia [Unknown]
  - Dengue fever [Unknown]
  - Disease progression [Unknown]
  - Metastases to central nervous system [Unknown]
  - Amnesia [Unknown]
